FAERS Safety Report 19567189 (Version 1)
Quarter: 2021Q3

REPORT INFORMATION
  Report Type: Spontaneous
  Country: US (occurrence: US)
  Receive Date: 20210716
  Receipt Date: 20210716
  Transmission Date: 20211014
  Serious: Yes (Other)
  Sender: FDA-Public Use
  Company Number: US-JNJFOC-20210716616

PATIENT
  Sex: Female

DRUGS (1)
  1. NEUTROGENA SENSITIVE SKIN SUNBLOCK SPF60 PLUS [Suspect]
     Active Substance: TITANIUM DIOXIDE\ZINC OXIDE
     Indication: PRODUCT USED FOR UNKNOWN INDICATION
     Route: 061
     Dates: start: 20210703

REACTIONS (2)
  - Application site urticaria [Unknown]
  - Application site pain [Unknown]

NARRATIVE: CASE EVENT DATE: 20210703
